FAERS Safety Report 5122945-X (Version None)
Quarter: 2006Q4

REPORT INFORMATION
  Report Type: 
  Country: None (occurrence: None)
  Receive Date: 20061005
  Receipt Date: 20060919
  Transmission Date: 20070319
  Serious: Yes (Other)
  Sender: FDA-Public Use
  Company Number: 20060197

PATIENT
  Age: 74 Year
  Sex: Female

DRUGS (1)
  1. EPINEPHRINE INJECTION, USP (1071-25) 1 MG/ML [Suspect]
     Indication: EYE IRRIGATION
     Dosage: INTRAOCULAR
     Route: 031
     Dates: start: 20060905, end: 20060905

REACTIONS (6)
  - CORNEAL DISORDER [None]
  - CORNEAL GRAFT REJECTION [None]
  - ENDOTHELIAL DYSFUNCTION [None]
  - OCULAR VASCULAR DISORDER [None]
  - POST PROCEDURAL COMPLICATION [None]
  - SHOCK [None]
